FAERS Safety Report 18068285 (Version 1)
Quarter: 2020Q3

REPORT INFORMATION
  Report Type: Spontaneous
  Country: DE (occurrence: DE)
  Receive Date: 20200724
  Receipt Date: 20200724
  Transmission Date: 20201103
  Serious: Yes (Other)
  Sender: FDA-Public Use
  Company Number: DE-ASTRAZENECA-2020SE90787

PATIENT
  Sex: Male

DRUGS (2)
  1. QUETIAPINE FUMARATE. [Suspect]
     Active Substance: QUETIAPINE FUMARATE
     Indication: PRODUCT USED FOR UNKNOWN INDICATION
     Route: 048
  2. PIPAMPERONE [Concomitant]
     Active Substance: PIPAMPERONE
     Indication: RESTLESSNESS

REACTIONS (2)
  - Erectile dysfunction [Not Recovered/Not Resolved]
  - Product dose omission issue [Unknown]
